FAERS Safety Report 21993125 (Version 2)
Quarter: 2023Q2

REPORT INFORMATION
  Report Type: Report from Study
  Country: CA (occurrence: CA)
  Receive Date: 20230215
  Receipt Date: 20230517
  Transmission Date: 20230722
  Serious: Yes (Hospitalization, Other)
  Sender: FDA-Public Use
  Company Number: CA-002147023-NVSC2023CA028443

PATIENT
  Age: 22 Year
  Sex: Female

DRUGS (1)
  1. HYRIMOZ [Suspect]
     Active Substance: ADALIMUMAB-ADAZ
     Indication: Crohn^s disease
     Dosage: 40 MG, QW (EVERY 7 DAYS) (PRE-FILLED PEN)
     Route: 058
     Dates: start: 20221124

REACTIONS (3)
  - Small intestinal obstruction [Unknown]
  - Crohn^s disease [Unknown]
  - Tooth infection [Unknown]
